FAERS Safety Report 20872658 (Version 1)
Quarter: 2022Q2

REPORT INFORMATION
  Report Type: Spontaneous
  Country: US (occurrence: US)
  Receive Date: 20220525
  Receipt Date: 20220525
  Transmission Date: 20220721
  Serious: Yes (Other)
  Sender: FDA-Public Use
  Company Number: US-PFIZER INC-2020044756

PATIENT
  Age: 15 Year
  Sex: Male

DRUGS (2)
  1. DETROL LA [Suspect]
     Active Substance: TOLTERODINE TARTRATE
     Indication: Neurogenic bladder
     Dosage: 4 MG, 2X/DAY
     Route: 048
     Dates: start: 20200416
  2. DETROL LA [Suspect]
     Active Substance: TOLTERODINE TARTRATE
     Indication: Hypertonic bladder

REACTIONS (2)
  - Spina bifida [Unknown]
  - Off label use [Unknown]
